FAERS Safety Report 17012765 (Version 1)
Quarter: 2019Q4

REPORT INFORMATION
  Report Type: Spontaneous
  Country: US (occurrence: US)
  Receive Date: 20191001
  Receipt Date: 20191001
  Transmission Date: 20200122
  Serious: No
  Sender: FDA-Public Use
  Company Number: None

PATIENT
  Age: 93 Year
  Sex: Male

DRUGS (2)
  1. LORAZEPAM. [Concomitant]
     Active Substance: LORAZEPAM
  2. PREDNISONE 5MG TAB [Suspect]
     Active Substance: PREDNISONE
     Route: 048
     Dates: start: 20190925

REACTIONS (2)
  - Cough [None]
  - Productive cough [None]

NARRATIVE: CASE EVENT DATE: 20191001
